FAERS Safety Report 14372163 (Version 5)
Quarter: 2019Q1

REPORT INFORMATION
  Report Type: Report from Study
  Country: US (occurrence: US)
  Receive Date: 20180110
  Receipt Date: 20190107
  Transmission Date: 20190417
  Serious: Yes (Death, Hospitalization)
  Sender: FDA-Public Use
  Company Number: US-ROCHE-1987906

PATIENT
  Age: 67 Year
  Sex: Male
  Weight: 76 kg

DRUGS (19)
  1. VITAMIN B COMPLEX [Concomitant]
     Active Substance: CYANOCOBALAMIN\DEXPANTHENOL\NIACINAMIDE\PYRIDOXINE HYDROCHLORIDE\RIBOFLAVIN 5^-PHOSPHATE SODIUM\THIAMINE HYDROCHLORIDE\VITAMIN B COMPLEX
     Dosage: 1 PILL
     Route: 065
     Dates: start: 20170701
  2. SIMVASTATIN. [Concomitant]
     Active Substance: SIMVASTATIN
     Route: 065
     Dates: start: 20040101
  3. ETODOLAC. [Concomitant]
     Active Substance: ETODOLAC
     Route: 065
     Dates: start: 20110316, end: 20170828
  4. ROBITUSSIN AC (UNITED STATES) [Concomitant]
     Route: 065
     Dates: start: 20170829, end: 20170829
  5. ROBAXIN [Concomitant]
     Active Substance: METHOCARBAMOL
     Route: 065
     Dates: start: 20110401
  6. LEVOTHYROXINE. [Concomitant]
     Active Substance: LEVOTHYROXINE
     Route: 065
     Dates: start: 20040101
  7. NORVASC [Concomitant]
     Active Substance: AMLODIPINE BESYLATE
     Route: 065
     Dates: start: 20100701
  8. ONDANSETRON [Concomitant]
     Active Substance: ONDANSETRON
     Route: 065
     Dates: start: 20170815
  9. DILAUDID [Concomitant]
     Active Substance: HYDROMORPHONE HYDROCHLORIDE
     Dosage: PRN
     Route: 065
     Dates: start: 20170902, end: 20170903
  10. DILAUDID [Concomitant]
     Active Substance: HYDROMORPHONE HYDROCHLORIDE
     Dosage: PRN
     Route: 065
     Dates: start: 20170902, end: 20170903
  11. ATEZOLIZUMAB. [Suspect]
     Active Substance: ATEZOLIZUMAB
     Indication: NON-SMALL CELL LUNG CANCER
     Route: 042
  12. ALBUTEROL SULFATE. [Concomitant]
     Active Substance: ALBUTEROL SULFATE
     Dosage: NEBULIZER SOLUTION
     Route: 065
     Dates: start: 20170829, end: 20170830
  13. XANAX [Concomitant]
     Active Substance: ALPRAZOLAM
     Route: 065
     Dates: start: 20170829, end: 20170901
  14. ALBUTEROL. [Concomitant]
     Active Substance: ALBUTEROL
     Dosage: 2 PUFFS
     Route: 065
     Dates: start: 20170629
  15. ROBITUSSIN AC (UNITED STATES) [Concomitant]
     Route: 065
     Dates: start: 20170829, end: 20170829
  16. TESSALON [Concomitant]
     Active Substance: BENZONATATE
     Route: 065
     Dates: start: 20170815, end: 20170830
  17. SYMBICORT [Concomitant]
     Active Substance: BUDESONIDE\FORMOTEROL FUMARATE DIHYDRATE
     Dosage: 2 PUFFS
     Route: 065
     Dates: start: 20170401, end: 20170828
  18. LOVENOX [Concomitant]
     Active Substance: ENOXAPARIN SODIUM
     Route: 065
     Dates: start: 20170829, end: 20170901
  19. LEVAQUIN [Concomitant]
     Active Substance: LEVOFLOXACIN
     Route: 065
     Dates: start: 20170829, end: 20170902

REACTIONS (2)
  - Respiratory failure [Fatal]
  - Sepsis [Not Recovered/Not Resolved]

NARRATIVE: CASE EVENT DATE: 20170825
